FAERS Safety Report 9342640 (Version 1)
Quarter: 2013Q2

REPORT INFORMATION
  Report Type: Report from Study
  Country: US (occurrence: US)
  Receive Date: 20130611
  Receipt Date: 20130611
  Transmission Date: 20140414
  Serious: Yes (Hospitalization)
  Sender: FDA-Public Use
  Company Number: US-ABBOTT-13P-163-1099406-00

PATIENT
  Sex: Female
  Weight: 92.62 kg

DRUGS (11)
  1. HUMIRA [Suspect]
     Indication: RHEUMATOID ARTHRITIS
     Dates: start: 201301, end: 201304
  2. ARAVA [Suspect]
     Indication: RHEUMATOID ARTHRITIS
     Dates: start: 2000, end: 201304
  3. LIPITOR [Suspect]
     Indication: BLOOD CHOLESTEROL INCREASED
  4. ATENOLOL [Suspect]
     Indication: HYPERTENSION
     Dates: end: 201305
  5. ATENOLOL [Suspect]
     Dates: start: 201305
  6. HYDROCODONE/ACETAMINOPHEN [Suspect]
     Indication: PAIN
     Dosage: 10/325 MG
     Dates: end: 201305
  7. ACIPHEX [Concomitant]
     Indication: GASTROOESOPHAGEAL REFLUX DISEASE
  8. LISINOPRIL [Concomitant]
     Indication: HYPERTENSION
  9. ZOLOFT [Concomitant]
     Indication: ANXIETY
  10. ASPIRIN [Concomitant]
     Indication: PROPHYLAXIS
  11. ASPIRIN [Concomitant]
     Indication: CARDIAC DISORDER

REACTIONS (13)
  - Spinal osteoarthritis [Not Recovered/Not Resolved]
  - Back pain [Not Recovered/Not Resolved]
  - Injection site swelling [Recovered/Resolved]
  - Injection site erythema [Recovered/Resolved]
  - Injection site pruritus [Recovered/Resolved]
  - Injection site swelling [Recovered/Resolved]
  - Injection site erythema [Recovered/Resolved]
  - Injection site pruritus [Recovered/Resolved]
  - Incorrect dose administered [Not Recovered/Not Resolved]
  - Device malfunction [Not Recovered/Not Resolved]
  - Drug ineffective [Not Recovered/Not Resolved]
  - Liver function test abnormal [Unknown]
  - Arthralgia [Not Recovered/Not Resolved]
